FAERS Safety Report 16145037 (Version 1)
Quarter: 2019Q2

REPORT INFORMATION
  Report Type: Spontaneous
  Country: US (occurrence: US)
  Receive Date: 20190401
  Receipt Date: 20190401
  Transmission Date: 20190711
  Serious: Yes (Other)
  Sender: FDA-Public Use
  Company Number: None

PATIENT
  Age: 43 Year
  Sex: Female
  Weight: 81 kg

DRUGS (1)
  1. CIPROFLOXACIN HCL [Suspect]
     Active Substance: CIPROFLOXACIN HYDROCHLORIDE
     Indication: CELLULITIS
     Dosage: ?          QUANTITY:20 TABLET(S);?
     Route: 048
     Dates: start: 20190327, end: 20190328

REACTIONS (14)
  - Malaise [None]
  - Hypoaesthesia [None]
  - Ear discomfort [None]
  - Dizziness [None]
  - Flushing [None]
  - Rash [None]
  - Stomatitis [None]
  - Fatigue [None]
  - Paraesthesia [None]
  - Pain in extremity [None]
  - Nausea [None]
  - Abdominal pain upper [None]
  - Glossitis [None]
  - Arthralgia [None]

NARRATIVE: CASE EVENT DATE: 20190327
